FAERS Safety Report 12167752 (Version 2)
Quarter: 2016Q2

REPORT INFORMATION
  Report Type: Spontaneous
  Country: US (occurrence: US)
  Receive Date: 20160310
  Receipt Date: 20160418
  Transmission Date: 20160815
  Serious: Yes (Hospitalization)
  Sender: FDA-Public Use
  Company Number: US-BEH-2016059571

PATIENT
  Sex: Female
  Weight: 92 kg

DRUGS (48)
  1. DIFLUCAN [Concomitant]
     Active Substance: FLUCONAZOLE
  2. ZOFRAN [Concomitant]
     Active Substance: ONDANSETRON HYDROCHLORIDE
  3. PROMETHAZINE [Concomitant]
     Active Substance: PROMETHAZINE\PROMETHAZINE HYDROCHLORIDE
  4. A THRU Z SELECT MULTIVIT [Concomitant]
  5. METFORMIN [Concomitant]
     Active Substance: METFORMIN HYDROCHLORIDE
  6. PREMARIN [Concomitant]
     Active Substance: ESTROGENS, CONJUGATED
  7. HIZENTRA [Suspect]
     Active Substance: HUMAN IMMUNOGLOBULIN G
     Route: 058
     Dates: start: 20110411
  8. EPIPEN [Concomitant]
     Active Substance: EPINEPHRINE
  9. PULMICORT TURBUHALER [Concomitant]
     Active Substance: BUDESONIDE
  10. XOPENEX [Concomitant]
     Active Substance: LEVALBUTEROL HYDROCHLORIDE
  11. LOMOTIL [Concomitant]
     Active Substance: ATROPINE SULFATE\DIPHENOXYLATE HYDROCHLORIDE
  12. VENTOLIN [Concomitant]
     Active Substance: ALBUTEROL SULFATE
  13. VITAMIN D [Concomitant]
     Active Substance: CHOLECALCIFEROL
  14. ALEVE [Concomitant]
     Active Substance: NAPROXEN SODIUM
  15. DIPHENHYDRAMINE. [Concomitant]
     Active Substance: DIPHENHYDRAMINE
  16. LIDOCAINE. [Concomitant]
     Active Substance: LIDOCAINE
  17. CREON [Concomitant]
     Active Substance: PANCRELIPASE AMYLASE\PANCRELIPASE LIPASE\PANCRELIPASE PROTEASE
  18. ZITHROMAX [Concomitant]
     Active Substance: AZITHROMYCIN DIHYDRATE
  19. FLUDROCORTISONE ACETATE. [Concomitant]
     Active Substance: FLUDROCORTISONE ACETATE
  20. DIGESTIVE PROBIOTIC [Concomitant]
  21. AFRIN [Concomitant]
     Active Substance: OXYMETAZOLINE
  22. CLOTRIMAZOLE. [Concomitant]
     Active Substance: CLOTRIMAZOLE
  23. AZELASTINE [Concomitant]
     Active Substance: AZELASTINE
  24. BUTALBITAL, ACETAMINOPHEN, AND CAFFEINE [Concomitant]
     Active Substance: ACETAMINOPHEN\BUTALBITAL\CAFFEINE
  25. HYDROMET [Concomitant]
     Active Substance: HOMATROPINE METHYLBROMIDE\HYDROCODONE BITARTRATE
  26. LEVALBUTEROL. [Concomitant]
     Active Substance: LEVALBUTEROL
  27. COLESTIPOL [Concomitant]
     Active Substance: COLESTIPOL
  28. SYMBICORT [Concomitant]
     Active Substance: BUDESONIDE\FORMOTEROL FUMARATE DIHYDRATE
  29. BACTRIM DS [Concomitant]
     Active Substance: SULFAMETHOXAZOLE\TRIMETHOPRIM
  30. FUROSEMIDE. [Concomitant]
     Active Substance: FUROSEMIDE
  31. SPIRIVA [Concomitant]
     Active Substance: TIOTROPIUM BROMIDE MONOHYDRATE
  32. CORTICOSTEROIDS [Concomitant]
     Active Substance: CORTICOSTEROID NOS
  33. HIZENTRA [Suspect]
     Active Substance: HUMAN IMMUNOGLOBULIN G
     Indication: IMMUNODEFICIENCY COMMON VARIABLE
     Route: 058
  34. PREDNISONE. [Concomitant]
     Active Substance: PREDNISONE
  35. ZYRTEC [Concomitant]
     Active Substance: CETIRIZINE HYDROCHLORIDE
  36. FLECTOR [Concomitant]
     Active Substance: DICLOFENAC EPOLAMINE
  37. MUCINEX DM [Concomitant]
     Active Substance: DEXTROMETHORPHAN HYDROBROMIDE\GUAIFENESIN
  38. LMX [Concomitant]
     Active Substance: LIDOCAINE
  39. NEXIUM [Concomitant]
     Active Substance: ESOMEPRAZOLE MAGNESIUM
  40. XIFAXAN [Concomitant]
     Active Substance: RIFAXIMIN
  41. MUPIROCIN. [Concomitant]
     Active Substance: MUPIROCIN
  42. TETRAHYDROZOLINE [Concomitant]
     Active Substance: TETRAHYDROZOLINE
  43. QVAR [Concomitant]
     Active Substance: BECLOMETHASONE DIPROPIONATE
  44. THEOPHYLLINE [Concomitant]
     Active Substance: THEOPHYLLINE ANHYDROUS
  45. METOCLOPRAMIDE. [Concomitant]
     Active Substance: METOCLOPRAMIDE
  46. POTASSIUM [Concomitant]
     Active Substance: POTASSIUM
  47. IRON [Concomitant]
     Active Substance: IRON
  48. IMODIUM [Concomitant]
     Active Substance: LOPERAMIDE HYDROCHLORIDE

REACTIONS (6)
  - Asthenia [Unknown]
  - Escherichia infection [Unknown]
  - Dehydration [Unknown]
  - Colitis [Unknown]
  - Blood potassium decreased [Unknown]
  - Drug dose omission [Unknown]
